FAERS Safety Report 20516056 (Version 1)
Quarter: 2022Q1

REPORT INFORMATION
  Report Type: Spontaneous
  Country: US (occurrence: US)
  Receive Date: 20220225
  Receipt Date: 20220225
  Transmission Date: 20220424
  Serious: Yes (Other)
  Sender: FDA-Public Use
  Company Number: US-SUN PHARMACEUTICAL INDUSTRIES LTD-2022R1-327039

PATIENT
  Age: 43 Year
  Sex: Male

DRUGS (1)
  1. TESTOSTERONE [Suspect]
     Active Substance: TESTOSTERONE
     Indication: Hormone therapy
     Dosage: 120 MILLIGRAM, WEEKLY
     Route: 065

REACTIONS (3)
  - Diastolic hypertension [Not Recovered/Not Resolved]
  - Blood testosterone increased [Recovered/Resolved]
  - Granuloma [Recovering/Resolving]
